FAERS Safety Report 4613800-X (Version None)
Quarter: 2005Q1

REPORT INFORMATION
  Report Type: 
  Country: None (occurrence: None)
  Receive Date: 20050316
  Receipt Date: 20050304
  Transmission Date: 20050727
  Serious: No
  Sender: FDA-Public Use
  Company Number: MED000013

PATIENT
  Age: 32 Year
  Sex: Female
  Weight: 58.0604 kg

DRUGS (2)
  1. SODIUM CHLORIDE 0.9% [Suspect]
     Indication: PLASMAPHERESIS
     Dosage: ONCE; INTRAVENOUS
     Route: 042
     Dates: start: 20050125, end: 20050125
  2. SODIUM CITRATE [Suspect]
     Indication: PLASMAPHERESIS
     Dosage: ONCE, INTRAVENOUS
     Route: 042
     Dates: start: 20050125, end: 20050125

REACTIONS (7)
  - EYE OEDEMA [None]
  - EYE PRURITUS [None]
  - FLUSHING [None]
  - NASAL CONGESTION [None]
  - REFUSAL OF TREATMENT BY PATIENT [None]
  - RHINORRHOEA [None]
  - URTICARIA [None]
